FAERS Safety Report 10254311 (Version 2)
Quarter: 2014Q2

REPORT INFORMATION
  Report Type: Spontaneous
  Country: JP (occurrence: JP)
  Receive Date: 20140624
  Receipt Date: 20140624
  Transmission Date: 20141212
  Serious: Yes (Death, Life-Threatening, Hospitalization, Other)
  Sender: FDA-Public Use
  Company Number: JP-PFIZER INC-2014151807

PATIENT
  Age: 82 Year
  Sex: Male
  Weight: 40.8 kg

DRUGS (8)
  1. SUTENT [Suspect]
     Indication: RENAL CELL CARCINOMA
     Dosage: 37.5 MG, DAILY
     Route: 048
     Dates: start: 20140325, end: 20140422
  2. FERO-GRADUMET [Concomitant]
     Indication: HAEMATURIA
     Dosage: 105 MG, 2X/DAY
     Route: 048
     Dates: start: 20140228, end: 20140423
  3. ADONA [Concomitant]
     Indication: HAEMATURIA
     Dosage: 30 MG, 2X/DAY
     Dates: start: 20140228, end: 20140423
  4. MUCOSTA [Concomitant]
     Dosage: 100 MG, 3X/DAY
     Route: 048
     Dates: end: 20140423
  5. GASTERD [Concomitant]
     Dosage: 10 MG, 2X/DAY
     Route: 048
     Dates: end: 20140423
  6. BASEN [Concomitant]
     Indication: DIABETES MELLITUS
     Dosage: 0.2 MG, 2X/DAY
     Route: 048
     Dates: end: 20140423
  7. ALINAMIN-F [Concomitant]
     Dosage: 25 MG, 1X/DAY
     Dates: end: 20140423
  8. MUCODYNE [Concomitant]
     Indication: PRODUCTIVE COUGH
     Dosage: 250 MG, 3X/DAY
     Dates: start: 20140407, end: 20140423

REACTIONS (4)
  - Rhabdomyolysis [Fatal]
  - Hepatitis acute [Fatal]
  - Gastrointestinal haemorrhage [Fatal]
  - Disseminated intravascular coagulation [Unknown]
